FAERS Safety Report 7276634-6 (Version None)
Quarter: 2011Q1

REPORT INFORMATION
  Report Type: 
  Country: None (occurrence: None)
  Receive Date: 20110204
  Receipt Date: 20110126
  Transmission Date: 20110831
  Serious: Yes (Hospitalization, Other)
  Sender: FDA-Public Use
  Company Number: US-BAYER-2011-009791

PATIENT
  Sex: Male

DRUGS (1)
  1. AVELOX [Suspect]
     Indication: PRODUCT USED FOR UNKNOWN INDICATION
     Dosage: 400 MG, QD
     Route: 048
     Dates: start: 20110126, end: 20110126

REACTIONS (6)
  - CONVULSION [None]
  - VOMITING [None]
  - ANAPHYLACTIC REACTION [None]
  - LOSS OF CONSCIOUSNESS [None]
  - OEDEMA MOUTH [None]
  - RASH GENERALISED [None]
